FAERS Safety Report 8601491-2 (Version None)
Quarter: 2012Q3

REPORT INFORMATION
  Report Type: 
  Country: None (occurrence: None)
  Receive Date: 20120817
  Receipt Date: 20110930
  Transmission Date: 20120928
  Serious: No
  Sender: FDA-Public Use
  Company Number: US-BRISTOL-MYERS SQUIBB COMPANY-16120867

PATIENT
  Age: 72 Year
  Sex: Male
  Weight: 88 kg

DRUGS (6)
  1. CYTARABINE [Suspect]
     Dosage: 1DF:6 DRIPS.
  2. NEXIUM [Concomitant]
  3. METHOTREXATE [Suspect]
  4. ELSPAR [Suspect]
  5. LASIX [Concomitant]
  6. SPRYCEL [Suspect]
     Dates: start: 20110301

REACTIONS (3)
  - FLUID RETENTION [None]
  - FEELING ABNORMAL [None]
  - POOR QUALITY SLEEP [None]
